FAERS Safety Report 10385450 (Version 7)
Quarter: 2014Q4

REPORT INFORMATION
  Report Type: Spontaneous
  Country: US (occurrence: US)
  Receive Date: 20140814
  Receipt Date: 20141208
  Transmission Date: 20150528
  Serious: Yes (Hospitalization, Other)
  Sender: FDA-Public Use
  Company Number: US-GLAXOSMITHKLINE-A1084023A

PATIENT
  Age: 76 Year
  Sex: Female

DRUGS (19)
  1. PROAIR HFA [Concomitant]
     Active Substance: ALBUTEROL SULFATE
  2. METOPROLOL [Concomitant]
     Active Substance: METOPROLOL
  3. POTASSIUM [Concomitant]
     Active Substance: POTASSIUM
  4. MAGNESIUM OXIDE. [Concomitant]
     Active Substance: MAGNESIUM OXIDE
  5. ICAPS [Concomitant]
     Active Substance: MINERALS\VITAMINS
  6. ZOVIRAX [Suspect]
     Active Substance: ACYCLOVIR
     Indication: STAPHYLOCOCCAL INFECTION
     Route: 065
  7. ALBUTEROL NEBULIZER [Concomitant]
     Active Substance: ALBUTEROL
  8. DILTIAZEM HYDROCHLORIDE EXTENDED RELEASE [Concomitant]
     Active Substance: DILTIAZEM HYDROCHLORIDE
  9. FUROSEMIDE. [Concomitant]
     Active Substance: FUROSEMIDE
  10. ALPRAZOLAM. [Concomitant]
     Active Substance: ALPRAZOLAM
  11. MAGIC MOUTHWASH [Concomitant]
     Active Substance: DIPHENHYDRAMINE HYDROCHLORIDE\LIDOCAINE HYDROCHLORIDE\NYSTATIN
  12. UNKNOWN MEDICATION [Concomitant]
     Active Substance: UNSPECIFIED INGREDIENT
  13. PRADAXA [Concomitant]
     Active Substance: DABIGATRAN ETEXILATE MESYLATE
  14. CEFUROXIME. [Concomitant]
     Active Substance: CEFUROXIME
  15. LOSARTAN [Concomitant]
     Active Substance: LOSARTAN
  16. ADVAIR HFA [Suspect]
     Active Substance: FLUTICASONE PROPIONATE\SALMETEROL XINAFOATE
     Indication: CHRONIC OBSTRUCTIVE PULMONARY DISEASE
     Dosage: 1 PUFF(S), BID
     Dates: start: 2004
  17. ADVAIR HFA [Suspect]
     Active Substance: FLUTICASONE PROPIONATE\SALMETEROL XINAFOATE
     Indication: ASTHMA
     Dosage: UNK
     Dates: start: 2004
  18. TIKOSYN [Concomitant]
     Active Substance: DOFETILIDE
  19. ASPIRIN. [Concomitant]
     Active Substance: ASPIRIN

REACTIONS (12)
  - Pneumonia [Recovering/Resolving]
  - Atrial fibrillation [Unknown]
  - Treatment noncompliance [Unknown]
  - Chronic obstructive pulmonary disease [Recovering/Resolving]
  - Underdose [Unknown]
  - Oral candidiasis [Not Recovered/Not Resolved]
  - Ageusia [Not Recovered/Not Resolved]
  - Oral disorder [Unknown]
  - Alopecia [Not Recovered/Not Resolved]
  - Hospitalisation [Recovering/Resolving]
  - Asthma [Recovering/Resolving]
  - Staphylococcal infection [Not Recovered/Not Resolved]

NARRATIVE: CASE EVENT DATE: 20140127
